FAERS Safety Report 20999883 (Version 1)
Quarter: 2022Q2

REPORT INFORMATION
  Report Type: Report from Study
  Country: DE (occurrence: DE)
  Receive Date: 20220623
  Receipt Date: 20220623
  Transmission Date: 20220721
  Serious: Yes (Death, Hospitalization, Other)
  Sender: FDA-Public Use
  Company Number: DE-CELGENE-DEU-20210206002

PATIENT
  Age: 68 Year
  Sex: Male
  Weight: 75 kg

DRUGS (6)
  1. LENALIDOMIDE [Suspect]
     Active Substance: LENALIDOMIDE
     Indication: Ductal adenocarcinoma of pancreas
     Dosage: 10 MILLIGRAM
     Route: 048
     Dates: start: 20201216, end: 20201230
  2. DURVALUMAB [Suspect]
     Active Substance: DURVALUMAB
     Indication: Ductal adenocarcinoma of pancreas
     Dosage: 1500 MILLIGRAM
     Route: 042
     Dates: start: 20201216, end: 20201216
  3. PACLITAXEL [Suspect]
     Active Substance: PACLITAXEL
     Indication: Ductal adenocarcinoma of pancreas
     Dosage: 250 MILLIGRAM
     Route: 042
     Dates: start: 20200106, end: 20200106
  4. PACLITAXEL [Suspect]
     Active Substance: PACLITAXEL
     Dosage: 260 MILLIGRAM
     Route: 042
     Dates: start: 20200911, end: 20201125
  5. GEMCITABINE [Suspect]
     Active Substance: GEMCITABINE
     Indication: Ductal adenocarcinoma of pancreas
     Dosage: 2 GRAM
     Route: 042
     Dates: start: 20200106, end: 20200106
  6. GEMCITABINE [Suspect]
     Active Substance: GEMCITABINE
     Dosage: 260 MILLIGRAM
     Route: 042
     Dates: start: 20200911, end: 20201125

REACTIONS (2)
  - Nausea [Not Recovered/Not Resolved]
  - Acute kidney injury [Fatal]

NARRATIVE: CASE EVENT DATE: 20210219
